FAERS Safety Report 7986199-9 (Version None)
Quarter: 2011Q4

REPORT INFORMATION
  Report Type: 
  Country: None (occurrence: None)
  Receive Date: 20111216
  Receipt Date: 20111213
  Transmission Date: 20120403
  Serious: Yes (Hospitalization)
  Sender: FDA-Public Use
  Company Number: US-GLAXOSMITHKLINE-A0957989A

PATIENT
  Age: 77 Year
  Sex: Female

DRUGS (4)
  1. ADVAIR DISKUS 100/50 [Suspect]
     Indication: CHRONIC OBSTRUCTIVE PULMONARY DISEASE
     Dosage: 1PUFF TWICE PER DAY
     Route: 055
     Dates: start: 20101201
  2. OXYGEN [Concomitant]
  3. ANTIDEPRESSANT [Concomitant]
  4. LAMICTAL [Concomitant]

REACTIONS (2)
  - THROAT IRRITATION [None]
  - DYSPNOEA [None]
